FAERS Safety Report 5053297-1 (Version None)
Quarter: 2006Q3

REPORT INFORMATION
  Report Type: 
  Country: None (occurrence: None)
  Receive Date: 20060712
  Receipt Date: 20060623
  Transmission Date: 20061208
  Serious: Yes (Hospitalization)
  Sender: FDA-Public Use
  Company Number: FR200606005262

PATIENT
  Age: 70 Year
  Sex: Female

DRUGS (2)
  1. FORTEO [Suspect]
     Indication: OSTEOPOROSIS
     Dosage: 20 UG, DAILY (1/D), SUBCUTANEOUS
     Route: 058
     Dates: start: 20050718
  2. FORTEO [Concomitant]

REACTIONS (6)
  - DYSPNOEA [None]
  - HOT FLUSH [None]
  - HYPONATRAEMIA [None]
  - PAIN IN EXTREMITY [None]
  - SYNCOPE VASOVAGAL [None]
  - VERTIGO [None]
